FAERS Safety Report 5833115-1 (Version None)
Quarter: 2008Q3

REPORT INFORMATION
  Report Type: 
  Country: None (occurrence: None)
  Receive Date: 20080805
  Receipt Date: 20080722
  Transmission Date: 20090109
  Serious: Yes (Other)
  Sender: FDA-Public Use
  Company Number: JP-ASTRAZENECA-2008AP04576

PATIENT
  Age: 40 Year
  Sex: Male
  Weight: 70 kg

DRUGS (6)
  1. ANAPEINE INJECTION [Suspect]
     Indication: ANALGESIA
     Route: 008
     Dates: start: 20080527, end: 20080527
  2. ANAPEINE INJECTION [Suspect]
     Route: 008
     Dates: start: 20080527, end: 20080528
  3. CARBOCAIN [Suspect]
     Indication: ANALGESIA
     Route: 008
     Dates: start: 20080527, end: 20080527
  4. DIPRIVAN INJECTION [Concomitant]
     Indication: INDUCTION OF ANAESTHESIA
     Route: 042
     Dates: start: 20080527, end: 20080527
  5. ESLAX [Concomitant]
     Indication: INDUCTION OF ANAESTHESIA
     Route: 042
     Dates: start: 20080527, end: 20080527
  6. SEVOFLURANE [Concomitant]
     Indication: GENERAL ANAESTHESIA
     Dosage: DOSE UNKNOWN
     Route: 055
     Dates: start: 20080527, end: 20080527

REACTIONS (2)
  - HYPOAESTHESIA [None]
  - MUSCULAR WEAKNESS [None]
